FAERS Safety Report 24165724 (Version 1)
Quarter: 2024Q3

REPORT INFORMATION
  Report Type: Report from Study
  Country: US (occurrence: US)
  Receive Date: 20240802
  Receipt Date: 20240802
  Transmission Date: 20241017
  Serious: Yes (Other)
  Sender: JAZZ
  Company Number: US-JAZZ-2020-US-015805

PATIENT
  Sex: Female

DRUGS (11)
  1. XYREM [Suspect]
     Active Substance: SODIUM OXYBATE
     Indication: Narcolepsy
     Dosage: UNK
     Dates: start: 202004
  2. XYREM [Suspect]
     Active Substance: SODIUM OXYBATE
     Indication: Cataplexy
     Dosage: 2.25 GRAM, BID
     Route: 048
     Dates: start: 202009, end: 202010
  3. XYREM [Suspect]
     Active Substance: SODIUM OXYBATE
     Dosage: 3 GRAM, BID
     Route: 048
     Dates: start: 202010, end: 202010
  4. XYREM [Suspect]
     Active Substance: SODIUM OXYBATE
     Dosage: NOT ABLE TO TAKE FULL 3.75G ON XYREM
     Route: 048
     Dates: start: 202011
  5. ASPIRIN [Concomitant]
     Active Substance: ASPIRIN
  6. FLONASE ALLERGY RELIEF [Concomitant]
     Active Substance: FLUTICASONE PROPIONATE
  7. FLUOXETINE HYDROCHLORIDE [Concomitant]
     Active Substance: FLUOXETINE HYDROCHLORIDE
  8. KYLEENA [Concomitant]
     Active Substance: LEVONORGESTREL
  9. LORATADINE [Concomitant]
     Active Substance: LORATADINE
  10. MODAFINIL [Concomitant]
     Active Substance: MODAFINIL
  11. PROAIR HFA [Concomitant]
     Active Substance: ALBUTEROL SULFATE

REACTIONS (2)
  - Meniere^s disease [Unknown]
  - Tinnitus [Not Recovered/Not Resolved]
